FAERS Safety Report 11883325 (Version 3)
Quarter: 2016Q1

REPORT INFORMATION
  Report Type: Spontaneous
  Country: US (occurrence: US)
  Receive Date: 20151231
  Receipt Date: 20160122
  Transmission Date: 20160526
  Serious: No
  Sender: FDA-Public Use
  Company Number: US-GILEAD-2015-0189890

PATIENT
  Age: 58 Year
  Sex: Female
  Weight: 102.95 kg

DRUGS (12)
  1. HARVONI [Suspect]
     Active Substance: LEDIPASVIR\SOFOSBUVIR
     Indication: HEPATITIS C
     Dosage: 1 DF, QD
     Route: 048
     Dates: start: 20151110
  2. TRAMADOL. [Concomitant]
     Active Substance: TRAMADOL
  3. ZYRTEC [Concomitant]
     Active Substance: CETIRIZINE HYDROCHLORIDE
  4. PROMETHAZINE [Concomitant]
     Active Substance: PROMETHAZINE\PROMETHAZINE HYDROCHLORIDE
  5. LEXAPRO [Concomitant]
     Active Substance: ESCITALOPRAM OXALATE
  6. HYDROCHLOROTHIAZIDE. [Concomitant]
     Active Substance: HYDROCHLOROTHIAZIDE
  7. RELAFEN [Concomitant]
     Active Substance: NABUMETONE
  8. LISINOPRIL. [Concomitant]
     Active Substance: LISINOPRIL
  9. PRENATAL                           /00231801/ [Concomitant]
     Active Substance: VITAMINS
  10. TRAZODONE [Concomitant]
     Active Substance: TRAZODONE HYDROCHLORIDE
  11. CYCLOBENZAPRINE [Concomitant]
     Active Substance: CYCLOBENZAPRINE
  12. XANAX [Concomitant]
     Active Substance: ALPRAZOLAM

REACTIONS (5)
  - Dizziness [Unknown]
  - Decreased appetite [Not Recovered/Not Resolved]
  - Vision blurred [Not Recovered/Not Resolved]
  - Headache [Not Recovered/Not Resolved]
  - Nausea [Not Recovered/Not Resolved]

NARRATIVE: CASE EVENT DATE: 201512
